FAERS Safety Report 7734094-2 (Version None)
Quarter: 2011Q3

REPORT INFORMATION
  Report Type: 
  Country: None (occurrence: None)
  Receive Date: 20110907
  Receipt Date: 20110831
  Transmission Date: 20111222
  Serious: Yes (Other)
  Sender: FDA-Public Use
  Company Number: BR-PFIZER INC-2011205716

PATIENT
  Age: 63 Year
  Sex: Male
  Weight: 77 kg

DRUGS (23)
  1. LOPERAMIDE [Concomitant]
     Dosage: 2 MG, AS NEEDED, EVERY 4 HOURS
     Route: 048
     Dates: start: 20110121, end: 20110221
  2. AMITRIPTYLINE [Concomitant]
     Dosage: 50 MG, 1X/DAY, AT NIGHT
     Route: 048
     Dates: start: 20100510, end: 20101128
  3. DIPYRONE TAB [Concomitant]
     Dosage: 30 DROPS, AS NEEDED, EVERY 4 HOURS
     Route: 048
     Dates: start: 20100108, end: 20100127
  4. DIPYRONE TAB [Concomitant]
     Dosage: 40 DROPS, EVERY 6 HOURS
     Route: 048
     Dates: start: 20100924, end: 20110110
  5. MINERAL OIL [Concomitant]
     Dosage: 1 MEASURE (UNSPECIFIED) EVERY 8 HOURS
     Route: 048
     Dates: start: 20100726, end: 20100902
  6. MINERAL OIL [Concomitant]
     Dosage: 1 MEASURE (UNSPECIFIED), AS NEEDED, EVERY 8 HOURS
     Route: 048
     Dates: start: 20100903, end: 20100923
  7. TRAMADOL [Concomitant]
     Dosage: 50 MG, 4X/DAY, EVERY 6 HOURS
     Route: 048
     Dates: start: 20100127, end: 20110902
  8. LEVOTHYROXINE SODIUM [Concomitant]
     Dosage: 25 MG, 1X/DAY, AT FASTING
     Route: 048
     Dates: start: 20100903
  9. TRAMADOL [Concomitant]
     Dosage: 50 MG, 3X/DAY, EVERY 8 HOURS
     Route: 048
     Dates: start: 20100108, end: 20100127
  10. DIPYRONE TAB [Concomitant]
     Dosage: 40 DROPS, AS NEEDED, EVERY 6 HOURS
     Route: 048
     Dates: start: 20100127, end: 20100510
  11. AMITRIPTYLINE [Concomitant]
     Dosage: 50 MG, 1X/DAY, AT NIGHT
     Route: 048
     Dates: start: 20101217, end: 20110110
  12. DIPYRONE TAB [Concomitant]
     Dosage: 40 DROPS, 4X/DAY, EVERY 6 HOURS
     Route: 048
     Dates: start: 20100510, end: 20100902
  13. NYSTATIN [Concomitant]
     Dosage: 5 ML, AS NEEDED, EVERY 6 HOURS
     Route: 048
     Dates: start: 20110121, end: 20110221
  14. AMITRIPTYLINE [Concomitant]
     Dosage: 25 MG, 1X/DAY, AT NIGHT
     Route: 048
     Dates: start: 20101129, end: 20101216
  15. MINERAL OIL [Concomitant]
     Dosage: 1 MEASURE (UNSPECIFIED) EVERY 8 HOURS
     Route: 048
     Dates: start: 20100924
  16. SUTENT [Suspect]
     Dosage: 50 MG, 1X/DAY
     Route: 048
     Dates: start: 20100513
  17. TRAMADOL [Concomitant]
     Dosage: 50 MG, 3X/DAY, EVERY 8 HOURS
     Route: 048
     Dates: start: 20100924
  18. AMITRIPTYLINE [Concomitant]
     Dosage: 25 MG, 1X/DAY, AT NIGHT
     Route: 048
     Dates: start: 20100318, end: 20100510
  19. AMITRIPTYLINE [Concomitant]
     Dosage: 25 MG, 1X/DAY, AT NIGHT
     Route: 048
     Dates: start: 20110111
  20. DIPYRONE TAB [Concomitant]
     Dosage: 40 DROPS, AS NEEDED, EVERY 6 HOURS
     Route: 048
     Dates: start: 20100903, end: 20100923
  21. DIPYRONE TAB [Concomitant]
     Dosage: 50 DROPS, EVERY 6 HOURS
     Route: 048
     Dates: start: 20110111
  22. BROMOPRIDE [Concomitant]
     Dosage: 10 MG, 3X/DAY
     Route: 048
     Dates: start: 20101129
  23. TRAMADOL [Concomitant]
     Dosage: 50 MG, AS NEEDED, EVERY 8 HOURS
     Route: 048
     Dates: start: 20100903, end: 20100923

REACTIONS (2)
  - DISORIENTATION [None]
  - ATAXIA [None]
